FAERS Safety Report 23425374 (Version 1)
Quarter: 2024Q1

REPORT INFORMATION
  Report Type: Report from Study
  Country: US (occurrence: US)
  Receive Date: 20240122
  Receipt Date: 20240122
  Transmission Date: 20240409
  Serious: No
  Sender: FDA-Public Use
  Company Number: US-Accord-374282

PATIENT
  Age: 69 Year
  Sex: Female
  Weight: 58.06 kg

DRUGS (1)
  1. CLOZAPINE [Suspect]
     Active Substance: CLOZAPINE
     Indication: Bipolar disorder
     Dosage: 250MG AT BEDTIME
     Dates: start: 202307

REACTIONS (1)
  - Off label use [Unknown]
